FAERS Safety Report 8619922-0 (Version None)
Quarter: 2012Q3

REPORT INFORMATION
  Report Type: 
  Country: None (occurrence: None)
  Receive Date: 20120824
  Receipt Date: 20120817
  Transmission Date: 20120928
  Serious: Yes (Hospitalization)
  Sender: FDA-Public Use
  Company Number: US-ABBOTT-12P-163-0971041-00

PATIENT
  Sex: Female
  Weight: 94.432 kg

DRUGS (11)
  1. MIDODRINE HYDROCHLORIDE [Concomitant]
     Indication: HYPERTENSION
  2. NEXIUM [Concomitant]
     Indication: GASTROOESOPHAGEAL REFLUX DISEASE
  3. PREDNISONE TAB [Concomitant]
     Indication: SARCOIDOSIS
  4. OXYCODONE HCL [Concomitant]
     Indication: INSOMNIA
  5. METOPROLOL TARTRATE [Concomitant]
     Indication: HYPERTENSION
  6. HUMIRA [Suspect]
     Indication: SARCOIDOSIS
     Dates: start: 20120101
  7. TRAZODONE HCL [Concomitant]
     Indication: INSOMNIA
  8. ACTINEL [Concomitant]
     Indication: OSTEOPOROSIS
  9. ATIVAN [Concomitant]
     Indication: ANXIETY
  10. ABILIFY [Concomitant]
     Indication: ANXIETY
  11. LEXAPRO [Concomitant]
     Indication: ANXIETY

REACTIONS (3)
  - LYMPHADENOPATHY [None]
  - SARCOIDOSIS [None]
  - OFF LABEL USE [None]
